FAERS Safety Report 16826922 (Version 3)
Quarter: 2021Q4

REPORT INFORMATION
  Report Type: Spontaneous
  Country: FR (occurrence: FR)
  Receive Date: 20190919
  Receipt Date: 20211020
  Transmission Date: 20220303
  Serious: Yes (Hospitalization, Other)
  Sender: FDA-Public Use
  Company Number: FR-SA-2019SA111490

PATIENT
  Age: 60 Year
  Sex: Male

DRUGS (21)
  1. MIANSERIN [Suspect]
     Active Substance: MIANSERIN
     Indication: Binge eating
     Dosage: 10 MILLIGRAM
  2. HYDROXYZINE [Suspect]
     Active Substance: HYDROXYZINE HYDROCHLORIDE
     Indication: Binge eating
     Dosage: 25 MILLIGRAM
  3. BACLOFEN [Suspect]
     Active Substance: BACLOFEN
     Indication: Binge eating
     Dosage: 120 TO 140 MG/D
     Route: 048
  4. BACLOFEN [Suspect]
     Active Substance: BACLOFEN
     Dosage: REGIMEN UP TO 300 MG/D
  5. BACLOFEN [Suspect]
     Active Substance: BACLOFEN
     Dosage: 70 MILLIGRAM, QD
     Route: 048
  6. BACLOFEN [Suspect]
     Active Substance: BACLOFEN
     Dosage: 60 MILLIGRAM, QD (DOSES UP TO 300 MG/D (60MG TAKEN 5 TIMEA A DAY))
     Route: 048
     Dates: start: 2016
  7. BACLOFEN [Suspect]
     Active Substance: BACLOFEN
     Dosage: 150 MILLIGRAM, QD (DOSAGE OF 150 MG/D AFTER MEDICAL EVALUATION)
     Route: 048
  8. BACLOFEN [Suspect]
     Active Substance: BACLOFEN
     Dosage: MIXED 10 AND 25 MG PILLS TO OBTAIN FULL DOSAGE
  9. BACLOFEN [Suspect]
     Active Substance: BACLOFEN
     Dosage: 180 TO 200 MG/D
  10. BACLOFEN [Suspect]
     Active Substance: BACLOFEN
     Dosage: DOSES TO 80 MG/D
  11. BACLOFEN [Suspect]
     Active Substance: BACLOFEN
     Dosage: 1 DOSAGE FORM, QD
     Route: 048
  12. TELMISARTAN [Concomitant]
     Active Substance: TELMISARTAN
     Indication: Binge eating
     Dosage: UNK
  13. RILMENIDINE [Concomitant]
     Active Substance: RILMENIDINE
     Indication: Binge eating
     Dosage: UNK
  14. SPIRONOLACTONE [Concomitant]
     Active Substance: SPIRONOLACTONE
     Indication: Binge eating
     Dosage: UNK
  15. ABACAVIR\LAMIVUDINE [Concomitant]
     Active Substance: ABACAVIR\LAMIVUDINE
     Indication: Binge eating
     Dosage: UNK
  16. LERCANIDIPINE [Concomitant]
     Active Substance: LERCANIDIPINE
     Indication: Product used for unknown indication
     Dosage: UNK
  17. NEVIRAPINE [Concomitant]
     Active Substance: NEVIRAPINE
     Dosage: UNK
  18. BISOPROLOL [Concomitant]
     Active Substance: BISOPROLOL
     Indication: Binge eating
     Dosage: UNK
  19. ASPIRIN [Concomitant]
     Active Substance: ASPIRIN
     Indication: Product used for unknown indication
     Dosage: UNK
  20. FLECAINIDE [Concomitant]
     Active Substance: FLECAINIDE
     Indication: Product used for unknown indication
     Dosage: UNK
  21. CANNABIS SATIVA SUBSP. INDICA TOP [Concomitant]
     Active Substance: CANNABIS SATIVA SUBSP. INDICA TOP
     Indication: Product used for unknown indication
     Dosage: UNK

REACTIONS (21)
  - Drug level increased [Recovered/Resolved]
  - Hallucination, visual [Unknown]
  - Delusional perception [Recovered/Resolved]
  - Psychotic disorder [Unknown]
  - Delusion [Unknown]
  - Time perception altered [Recovered/Resolved]
  - Confusional state [Recovered/Resolved]
  - Psychomotor hyperactivity [Unknown]
  - Aggression [Unknown]
  - Somnolence [Recovered/Resolved]
  - Drug withdrawal syndrome [Recovered/Resolved]
  - Overdose [Unknown]
  - Drug abuse [Unknown]
  - Cognitive disorder [Recovered/Resolved]
  - Tachyphrenia [Recovered/Resolved]
  - Amnesia [Recovered/Resolved]
  - Irritability [Recovered/Resolved]
  - Nausea [Recovered/Resolved]
  - Dizziness [Recovered/Resolved]
  - Medication error [Unknown]
  - Intentional product misuse [Unknown]
